FAERS Safety Report 11923437 (Version 3)
Quarter: 2016Q1

REPORT INFORMATION
  Report Type: Report from Study
  Country: DE (occurrence: DE)
  Receive Date: 20160118
  Receipt Date: 20160325
  Transmission Date: 20160526
  Serious: Yes (Hospitalization, Other)
  Sender: FDA-Public Use
  Company Number: DE-ABBVIE-16K-062-1536538-00

PATIENT
  Age: 46 Year
  Sex: Female
  Weight: 95 kg

DRUGS (4)
  1. HUMIRA [Suspect]
     Active Substance: ADALIMUMAB
     Indication: HIDRADENITIS
     Dosage: WEEK ONE
     Route: 058
     Dates: start: 20150917, end: 20150917
  2. HUMIRA [Suspect]
     Active Substance: ADALIMUMAB
     Dosage: WEEK THREE
     Route: 058
     Dates: start: 201510, end: 201510
  3. HUMIRA [Suspect]
     Active Substance: ADALIMUMAB
     Dosage: WEEK FOUR
     Route: 058
     Dates: start: 2015, end: 20160107
  4. HUMIRA [Suspect]
     Active Substance: ADALIMUMAB
     Indication: HIDRADENITIS
     Dosage: WEEK TWO
     Route: 058
     Dates: start: 201510, end: 201510

REACTIONS (9)
  - Paraesthesia [Recovered/Resolved]
  - Dysphemia [Unknown]
  - Nystagmus [Unknown]
  - Aphasia [Recovering/Resolving]
  - Weight increased [Unknown]
  - Headache [Not Recovered/Not Resolved]
  - Slow speech [Unknown]
  - Dysphonia [Unknown]
  - Diarrhoea [Unknown]

NARRATIVE: CASE EVENT DATE: 20160107
